FAERS Safety Report 11304147 (Version 1)
Quarter: 2015Q3

REPORT INFORMATION
  Report Type: Spontaneous
  Country: US (occurrence: US)
  Receive Date: 20150723
  Receipt Date: 20150723
  Transmission Date: 20151125
  Serious: No
  Sender: FDA-Public Use
  Company Number: US-JNJFOC-20150315760

PATIENT
  Age: 61 Year
  Sex: Female
  Weight: 58.97 kg

DRUGS (4)
  1. IRON [Concomitant]
     Active Substance: IRON
     Indication: NUTRITIONAL SUPPLEMENTATION
     Route: 065
  2. ZYRTEC [Suspect]
     Active Substance: CETIRIZINE HYDROCHLORIDE
     Route: 048
  3. ZYRTEC [Suspect]
     Active Substance: CETIRIZINE HYDROCHLORIDE
     Indication: MULTIPLE ALLERGIES
     Dosage: 1 TABLET DAILY
     Route: 048
     Dates: start: 20150317
  4. BABY ASPIRIN [Concomitant]
     Active Substance: ASPIRIN
     Indication: PRODUCT USED FOR UNKNOWN INDICATION
     Route: 065

REACTIONS (4)
  - Throat irritation [Unknown]
  - Nasal pruritus [Unknown]
  - Product use issue [Unknown]
  - Drug ineffective [Unknown]
